FAERS Safety Report 14250086 (Version 1)
Quarter: 2017Q4

REPORT INFORMATION
  Report Type: Spontaneous
  Country: IR (occurrence: IR)
  Receive Date: 20171205
  Receipt Date: 20171205
  Transmission Date: 20180321
  Serious: Yes (Hospitalization, Other)
  Sender: FDA-Public Use
  Company Number: IR-VISTAPHARM, INC.-VER201711-001172

PATIENT
  Age: 43 Year
  Sex: Female

DRUGS (2)
  1. LIDOCAINE. [Concomitant]
     Active Substance: LIDOCAINE
  2. PHENYTOIN. [Suspect]
     Active Substance: PHENYTOIN
     Indication: PRODUCT USED FOR UNKNOWN INDICATION

REACTIONS (5)
  - Pulse absent [Recovered/Resolved]
  - Compartment syndrome [Recovered/Resolved]
  - Arterial thrombosis [Recovered/Resolved]
  - Accidental exposure to product [Unknown]
  - Gangrene [Recovering/Resolving]
